FAERS Safety Report 10601543 (Version 1)
Quarter: 2014Q4

REPORT INFORMATION
  Report Type: Spontaneous
  Country: US (occurrence: US)
  Receive Date: 20141124
  Receipt Date: 20141124
  Transmission Date: 20150529
  Serious: Yes (Other)
  Sender: FDA-Public Use
  Company Number: US-SA-2014SA157778

PATIENT
  Age: 7 Week
  Sex: Male

DRUGS (1)
  1. ALGLUCOSIDASE ALFA [Suspect]
     Active Substance: ALGLUCOSIDASE ALFA
     Indication: GLYCOGEN STORAGE DISEASE TYPE II
     Route: 041

REACTIONS (6)
  - Urticaria [Unknown]
  - Respiratory distress [Unknown]
  - Angioedema [Unknown]
  - Dermatitis allergic [Unknown]
  - Anaphylactic reaction [Unknown]
  - Wheezing [Unknown]
